FAERS Safety Report 10064655 (Version 1)
Quarter: 2014Q2

REPORT INFORMATION
  Report Type: Spontaneous
  Country: VE (occurrence: VE)
  Receive Date: 20140408
  Receipt Date: 20140408
  Transmission Date: 20141212
  Serious: Yes (Hospitalization)
  Sender: FDA-Public Use
  Company Number: VE-SA-2014SA041704

PATIENT
  Age: 65 Year
  Sex: Male
  Weight: 75 kg

DRUGS (3)
  1. COAPROVEL [Suspect]
     Indication: HYPERTENSION
     Route: 048
     Dates: start: 2010, end: 20130806
  2. EFEXOR [Concomitant]
  3. RIVOTRIL [Concomitant]

REACTIONS (5)
  - Skin discolouration [Recovered/Resolved]
  - Dysuria [Recovered/Resolved]
  - Blood sodium decreased [Unknown]
  - Dizziness [Recovered/Resolved]
  - Face oedema [Recovered/Resolved]
